FAERS Safety Report 7404101-5 (Version None)
Quarter: 2011Q2

REPORT INFORMATION
  Report Type: 
  Country: None (occurrence: None)
  Receive Date: 20110408
  Receipt Date: 20101115
  Transmission Date: 20111010
  Serious: No
  Sender: FDA-Public Use
  Company Number: US-NOVOPROD-318450

PATIENT

DRUGS (1)
  1. GLUCAGEN [Suspect]
     Indication: HYPOGLYCAEMIA
     Dosage: 135 MICROGRAM OVER 175 MIN

REACTIONS (2)
  - VOMITING [None]
  - NAUSEA [None]
